FAERS Safety Report 5220030-X (Version None)
Quarter: 2007Q1

REPORT INFORMATION
  Report Type: 
  Country: None (occurrence: None)
  Receive Date: 20070124
  Receipt Date: 20070124
  Transmission Date: 20070707
  Serious: Yes (Other)
  Sender: FDA-Public Use
  Company Number: None

PATIENT
  Age: 79 Year
  Sex: Male
  Weight: 74.8 kg

DRUGS (9)
  1. LISINOPRIL [Suspect]
  2. SIMVASTATIN [Concomitant]
  3. FELODIPINE [Concomitant]
  4. ROSIGLITAZONE MALEATE [Concomitant]
  5. INSULIN , GLARGINE , HUMAN [Concomitant]
  6. SYNTHROID [Concomitant]
  7. INSULIN REG HUMAN NOVOLIN R [Concomitant]
  8. METOPROLOL SUCCINATE [Concomitant]
  9. DEXTROSE SQUEEZE TUBE [Concomitant]

REACTIONS (1)
  - COUGH [None]
